FAERS Safety Report 7646675-5 (Version None)
Quarter: 2011Q3

REPORT INFORMATION
  Report Type: 
  Country: None (occurrence: None)
  Receive Date: 20110801
  Receipt Date: 20110725
  Transmission Date: 20111222
  Serious: Yes (Other)
  Sender: FDA-Public Use
  Company Number: US-JNJFOC-20110711298

PATIENT
  Sex: Male
  Weight: 84.37 kg

DRUGS (8)
  1. PROMETHAZINE [Concomitant]
     Indication: NAUSEA
     Route: 048
     Dates: start: 20101101
  2. DEXAMETHASONE [Concomitant]
     Indication: NEOPLASM MALIGNANT
     Route: 048
     Dates: start: 20080101
  3. OXYCONTIN [Concomitant]
     Indication: PAIN
     Route: 048
     Dates: start: 20080101
  4. XANAX [Concomitant]
     Indication: ANXIETY
     Route: 048
     Dates: start: 20090101
  5. SANCTURA [Concomitant]
     Indication: BLADDER SPASM
     Route: 048
     Dates: start: 20100101
  6. NEXIUM [Concomitant]
     Indication: ANTACID THERAPY
     Route: 048
  7. ZYTIGA [Suspect]
     Indication: PROSTATE CANCER
     Route: 048
     Dates: start: 20110710
  8. VICODIN [Concomitant]
     Indication: PAIN
     Route: 048
     Dates: start: 20080101

REACTIONS (4)
  - MENTAL STATUS CHANGES [None]
  - INAPPROPRIATE SCHEDULE OF DRUG ADMINISTRATION [None]
  - ACCIDENTAL OVERDOSE [None]
  - CONFUSIONAL STATE [None]
